FAERS Safety Report 11446235 (Version 1)
Quarter: 2015Q3

REPORT INFORMATION
  Report Type: Spontaneous
  Country: US (occurrence: US)
  Receive Date: 20150902
  Receipt Date: 20150902
  Transmission Date: 20151125
  Serious: No
  Sender: FDA-Public Use
  Company Number: ALCN2015US002541

PATIENT
  Age: 86 Year
  Sex: Female
  Weight: 49.43 kg

DRUGS (1)
  1. PREDNISOLONE ACETATE. [Suspect]
     Active Substance: PREDNISOLONE ACETATE
     Indication: OPHTHALMIC HERPES SIMPLEX
     Dosage: 1 GTT, BID
     Route: 047
     Dates: start: 20150411, end: 20150412

REACTIONS (1)
  - Vision blurred [Recovered/Resolved]
